FAERS Safety Report 9408184 (Version 3)
Quarter: 2013Q3

REPORT INFORMATION
  Report Type: Spontaneous
  Country: JP (occurrence: None)
  Receive Date: 20130716
  Receipt Date: 20130813
  Transmission Date: 20140515
  Serious: Yes (Life-Threatening, Hospitalization)
  Sender: FDA-Public Use
  Company Number: 2013JP009084

PATIENT
  Age: 74 Year
  Sex: Male
  Weight: 49 kg

DRUGS (4)
  1. ALOXI [Suspect]
     Indication: PROPHYLAXIS OF NAUSEA AND VOMITING
     Route: 042
     Dates: start: 20110831, end: 20130703
  2. TS 1 (GIMERACIL, OTERACIL POTASSIUM, TEGAFUR) [Concomitant]
  3. DOCETAXEL (DOCETAXEL) [Concomitant]
  4. DECADRON (DEXAMETHASONE SODIUM PHOSPHATE) [Concomitant]

REACTIONS (4)
  - Infusion related reaction [None]
  - Loss of consciousness [None]
  - Dyspnoea [None]
  - Anaphylactic shock [None]
